FAERS Safety Report 17395706 (Version 1)
Quarter: 2020Q1

REPORT INFORMATION
  Report Type: Report from Study
  Country: CN (occurrence: CN)
  Receive Date: 20200210
  Receipt Date: 20200210
  Transmission Date: 20200409
  Serious: Yes (Death, Hospitalization)
  Sender: FDA-Public Use
  Company Number: NVSC2019CN017288

PATIENT
  Age: 69 Year
  Sex: Female

DRUGS (1)
  1. ZYKADIA [Suspect]
     Active Substance: CERITINIB
     Indication: NON-SMALL CELL LUNG CANCER
     Dosage: 450 MG, QD
     Route: 048
     Dates: start: 20190411

REACTIONS (3)
  - Death [Fatal]
  - Non-small cell lung cancer [Recovering/Resolving]
  - Malignant neoplasm progression [Recovering/Resolving]

NARRATIVE: CASE EVENT DATE: 20190803
